FAERS Safety Report 7221212-8 (Version None)
Quarter: 2011Q1

REPORT INFORMATION
  Report Type: 
  Country: None (occurrence: None)
  Receive Date: 20110103
  Receipt Date: 20101217
  Transmission Date: 20110831
  Serious: Yes (Hospitalization)
  Sender: FDA-Public Use
  Company Number: 2010CP000335

PATIENT
  Age: 10 Month
  Sex: Male

DRUGS (8)
  1. DIAZEPAM [Suspect]
     Indication: CONVULSION
     Dosage: 4 MG
     Dates: start: 20101027
  2. ACETAMINOPHEN [Suspect]
     Indication: PYREXIA
     Dosage: 80 MILLIGRAM; 4 HOUR; IV
     Route: 042
     Dates: start: 20101026
  3. PHENOBARBITAL (PHENOBARBITAL) [Suspect]
     Indication: CONVULSION
     Dosage: 200 MILLIGRAM; IV
     Route: 042
  4. MANNITOL [Concomitant]
  5. MICROPAKINE (ERGENYL CHRONO) [Suspect]
     Dosage: 100 MILLIGRAM
     Dates: start: 20101028
  6. PROPOFOL [Suspect]
     Indication: ANAESTHESIA
     Dosage: 40 MG; IV
     Route: 042
  7. SUFENTANIL (SUFENTANIL) [Suspect]
     Indication: ANAESTHESIA
     Dosage: IV
     Route: 042
  8. MIDAZOLAM HCL [Suspect]
     Indication: ANAESTHESIA
     Dosage: 50 MG; IV
     Route: 042
     Dates: start: 20101027

REACTIONS (5)
  - CYTOLYTIC HEPATITIS [None]
  - DRUG ADMINISTRATION ERROR [None]
  - HEPATOTOXICITY [None]
  - DRUG LEVEL BELOW THERAPEUTIC [None]
  - OVERDOSE [None]
